FAERS Safety Report 6705918-2 (Version None)
Quarter: 2010Q2

REPORT INFORMATION
  Report Type: 
  Country: None (occurrence: None)
  Receive Date: 20100503
  Receipt Date: 20100205
  Transmission Date: 20101027
  Serious: No
  Sender: FDA-Public Use
  Company Number: US-ASTRAZENECA-2010SE05317

PATIENT
  Age: 66 Year
  Sex: Male

DRUGS (3)
  1. NEXIUM [Suspect]
     Indication: GASTROOESOPHAGEAL REFLUX DISEASE
     Route: 048
     Dates: start: 20100203
  2. HERBAL SUBSTITUTE [Concomitant]
     Indication: ERECTILE DYSFUNCTION
  3. AMLODIPINE [Concomitant]

REACTIONS (1)
  - SEXUAL DYSFUNCTION [None]
